FAERS Safety Report 22120634 (Version 1)
Quarter: 2023Q1

REPORT INFORMATION
  Report Type: Report from Study
  Country: US (occurrence: None)
  Receive Date: 20230321
  Receipt Date: 20230321
  Transmission Date: 20230417
  Serious: Yes (Death)
  Sender: FDA-Public Use
  Company Number: US-ROCHE-3313176

PATIENT

DRUGS (3)
  1. VENETOCLAX [Suspect]
     Active Substance: VENETOCLAX
     Indication: Mantle cell lymphoma
     Dosage: 1-28 OF COURSE 1 AND DAYS 1-10 OF SUBSEQUENT COURSES, DATE OF COMPLETION OF FIRST DOSE C1: 30/APR/20
     Route: 048
  2. OBINUTUZUMAB [Suspect]
     Active Substance: OBINUTUZUMAB
     Indication: Mantle cell lymphoma
     Dosage: 1-28 OF COURSE 1 AND DAYS 1-10 OF SUBSEQUENT COURSES, DATE OF COMPLETION OF FIRST DOSE C1: , DATE OF
     Route: 042
  3. BENDAMUSTINE [Suspect]
     Active Substance: BENDAMUSTINE
     Indication: Mantle cell lymphoma
     Dosage: 1-28 OF COURSE 1 AND DAYS 1-10 OF SUBSEQUENT COURSES, DATE OF COMPLETION OF FIRST DOSE C1: 30/APR/20
     Route: 042

REACTIONS (1)
  - Death [Fatal]

NARRATIVE: CASE EVENT DATE: 20220105
